FAERS Safety Report 12077461 (Version 3)
Quarter: 2016Q2

REPORT INFORMATION
  Report Type: Spontaneous
  Country: JP (occurrence: JP)
  Receive Date: 20160215
  Receipt Date: 20160531
  Transmission Date: 20160815
  Serious: No
  Sender: FDA-Public Use
  Company Number: JP-PFIZER INC-2016090042

PATIENT
  Age: 70 Year
  Sex: Female

DRUGS (2)
  1. CAMPTO [Suspect]
     Active Substance: IRINOTECAN
     Indication: UTERINE CANCER
     Dosage: UNK, 1X/DAY
     Route: 041
  2. CISPLATIN. [Suspect]
     Active Substance: CISPLATIN
     Indication: UTERINE CANCER
     Dosage: UNK

REACTIONS (1)
  - Product use issue [Unknown]
